FAERS Safety Report 7313901-1 (Version None)
Quarter: 2011Q1

REPORT INFORMATION
  Report Type: 
  Country: None (occurrence: None)
  Receive Date: 20110216
  Receipt Date: 20110216
  Transmission Date: 20110831
  Serious: Yes (Hospitalization)
  Sender: FDA-Public Use
  Company Number: None

PATIENT
  Sex: Female
  Weight: 68 kg

DRUGS (2)
  1. TAXOL [Suspect]
     Dosage: 267.2 MG
     Dates: end: 20100816
  2. CARBOPLATIN [Suspect]
     Dosage: 630 MG
     Dates: end: 20100809

REACTIONS (2)
  - ABDOMINAL PAIN [None]
  - CONSTIPATION [None]
